FAERS Safety Report 9098471 (Version 2)
Quarter: 2013Q4

REPORT INFORMATION
  Report Type: Report from Study
  Country: JP (occurrence: JP)
  Receive Date: 20130213
  Receipt Date: 20131127
  Transmission Date: 20140711
  Serious: Yes (Hospitalization)
  Sender: FDA-Public Use
  Company Number: JP-AMGEN-JPNCT2013010459

PATIENT
  Age: 38 Year
  Sex: Male
  Weight: 62 kg

DRUGS (8)
  1. ROMIPLOSTIM - KHK [Suspect]
     Indication: IMMUNE THROMBOCYTOPENIC PURPURA
     Dosage: 1 MUG/KG, QWK
     Route: 058
     Dates: start: 20110818, end: 20111124
  2. PREDONINE [Concomitant]
     Indication: IMMUNE THROMBOCYTOPENIC PURPURA
     Dosage: 10 MG, UNK
     Route: 048
     Dates: start: 20111206
  3. REVOLADE [Concomitant]
     Indication: IMMUNE THROMBOCYTOPENIC PURPURA
     Dosage: 37.5 MG, UNK
     Route: 048
     Dates: start: 20110127, end: 20110817
  4. FOSAMAC [Concomitant]
     Indication: OSTEOPOROSIS
     Dosage: UNK
     Route: 048
  5. GASTER D [Concomitant]
     Indication: GASTRITIS
     Dosage: UNK
     Route: 048
  6. MUCOSTA [Concomitant]
     Indication: GASTRITIS
     Dosage: UNK
     Route: 065
  7. BENET [Concomitant]
     Indication: OSTEOPOROSIS
     Dosage: UNK
     Route: 048
  8. SANGLOPOR [Concomitant]
     Indication: IMMUNE THROMBOCYTOPENIC PURPURA
     Dosage: 22500 MG, UNK
     Route: 041
     Dates: start: 20111201, end: 20111205

REACTIONS (3)
  - Thrombocytopenia [Recovered/Resolved]
  - Purpura [Recovering/Resolving]
  - Leukocytosis [Recovered/Resolved]
